FAERS Safety Report 7926104-4 (Version None)
Quarter: 2011Q4

REPORT INFORMATION
  Report Type: 
  Country: None (occurrence: None)
  Receive Date: 20111118
  Receipt Date: 20110418
  Transmission Date: 20120403
  Serious: No
  Sender: FDA-Public Use
  Company Number: US-AMGEN-USASP2011020427

PATIENT
  Sex: Male

DRUGS (2)
  1. ENBREL [Suspect]
     Indication: PSORIATIC ARTHROPATHY
     Dosage: 50 MG, QWK
     Dates: start: 20030101
  2. ENBREL [Suspect]
     Indication: PSORIASIS

REACTIONS (6)
  - EYE PRURITUS [None]
  - PSORIASIS [None]
  - ERYTHEMA [None]
  - SKIN EXFOLIATION [None]
  - EYE INFECTION [None]
  - DIABETES MELLITUS [None]
